FAERS Safety Report 10403333 (Version 1)
Quarter: 2014Q3

REPORT INFORMATION
  Report Type: Spontaneous
  Country: IT (occurrence: IT)
  Receive Date: 20140822
  Receipt Date: 20140822
  Transmission Date: 20150326
  Serious: Yes (Other)
  Sender: FDA-Public Use
  Company Number: IT-TEVA-502305ISR

PATIENT
  Age: 59 Year
  Sex: Female

DRUGS (2)
  1. OXALIPLATIN MYLAN GENERICS [Interacting]
     Active Substance: OXALIPLATIN
     Indication: COLON CANCER
     Dosage: 123.3 MILLIGRAM DAILY;
     Route: 042
     Dates: start: 20140512, end: 20140512
  2. FLUOROURACILE TEVA [Suspect]
     Active Substance: FLUOROURACIL
     Indication: COLON CANCER
     Dosage: 4060 MILLIGRAM DAILY;
     Route: 042
     Dates: start: 20140512, end: 20140512

REACTIONS (2)
  - Neutropenia [Recovering/Resolving]
  - Drug interaction [Recovering/Resolving]

NARRATIVE: CASE EVENT DATE: 20140521
